FAERS Safety Report 4431299-3 (Version None)
Quarter: 2004Q3

REPORT INFORMATION
  Report Type: 
  Country: None (occurrence: None)
  Receive Date: 20040820
  Receipt Date: 20040820
  Transmission Date: 20050211
  Serious: Yes (Other)
  Sender: FDA-Public Use
  Company Number: None

PATIENT
  Age: 10 Year
  Sex: Male
  Weight: 43.0917 kg

DRUGS (3)
  1. TING SPRAY POWDER (INSIGHT PHARMACEUICALS) [Suspect]
     Indication: LOCAL ANTIFUNGAL TREATMENT
     Dosage: TOPICALLY
     Route: 061
  2. STRATTERA [Concomitant]
  3. ZYPREXA [Concomitant]

REACTIONS (5)
  - APPLICATION SITE REACTION [None]
  - BURNS SECOND DEGREE [None]
  - DERMATITIS EXFOLIATIVE [None]
  - IMPAIRED HEALING [None]
  - SELF-MEDICATION [None]
